FAERS Safety Report 8120820-X (Version None)
Quarter: 2012Q1

REPORT INFORMATION
  Report Type: 
  Country: None (occurrence: None)
  Receive Date: 20120207
  Receipt Date: 20120206
  Transmission Date: 20120608
  Serious: Yes (Death, Hospitalization)
  Sender: FDA-Public Use
  Company Number: US-BRISTOL-MYERS SQUIBB COMPANY-16037574

PATIENT
  Age: 78 Year
  Sex: Female

DRUGS (5)
  1. METOPROLOL TARTRATE [Suspect]
  2. BLINDED: SAXAGLIPTIN [Suspect]
     Indication: TYPE 2 DIABETES MELLITUS
     Dates: start: 20110218
  3. LEVEMIR [Suspect]
     Indication: TYPE 2 DIABETES MELLITUS
  4. BLINDED: PLACEBO [Suspect]
     Indication: TYPE 2 DIABETES MELLITUS
     Dates: start: 20110218
  5. ASPIRIN [Concomitant]

REACTIONS (4)
  - CELLULITIS [None]
  - DEHYDRATION [None]
  - AZOTAEMIA [None]
  - ARRHYTHMIA [None]
